FAERS Safety Report 12311267 (Version 3)
Quarter: 2016Q2

REPORT INFORMATION
  Report Type: Spontaneous
  Country: TR (occurrence: TR)
  Receive Date: 20160427
  Receipt Date: 20160516
  Transmission Date: 20160815
  Serious: Yes (Other)
  Sender: FDA-Public Use
  Company Number: TR-PFIZER INC-2016227589

PATIENT
  Age: 74 Year
  Sex: Female

DRUGS (4)
  1. ADVIL [Suspect]
     Active Substance: IBUPROFEN
     Indication: PAIN
     Dosage: UNK UNK, 3X/DAY
     Dates: start: 201604
  2. SIRDALUD [Concomitant]
     Active Substance: TIZANIDINE
     Dosage: HALF DOSE, 2X/DAY
  3. LANSOR [Concomitant]
     Active Substance: LANSOPRAZOLE
     Dosage: UNK, 1X/DAY
  4. ADVIL [Suspect]
     Active Substance: IBUPROFEN
     Indication: HEADACHE
     Dosage: UNK, 2X/DAY

REACTIONS (3)
  - Blindness unilateral [Not Recovered/Not Resolved]
  - Eye disorder [Not Recovered/Not Resolved]
  - Rheumatoid arthritis [Unknown]

NARRATIVE: CASE EVENT DATE: 20160419
